FAERS Safety Report 14745530 (Version 1)
Quarter: 2018Q2

REPORT INFORMATION
  Report Type: Spontaneous
  Country: DE (occurrence: DE)
  Receive Date: 20180411
  Receipt Date: 20180411
  Transmission Date: 20180711
  Serious: Yes (Hospitalization, Other)
  Sender: FDA-Public Use
  Company Number: DE-JNJFOC-20180403255

PATIENT
  Sex: Male

DRUGS (14)
  1. RITUXIMAB. [Suspect]
     Active Substance: RITUXIMAB
     Indication: B-CELL LYMPHOMA
     Route: 042
     Dates: start: 20151015, end: 20160216
  2. METHOTREXATE DISODIUM [Suspect]
     Active Substance: METHOTREXATE SODIUM
     Indication: B-CELL LYMPHOMA
     Route: 042
     Dates: start: 20151008, end: 20160128
  3. VINCRISTINE [Suspect]
     Active Substance: VINCRISTINE
     Indication: B-CELL LYMPHOMA
     Route: 042
     Dates: start: 20151016, end: 20160115
  4. DOXORUBICIN HYDROCHLORIDE. [Suspect]
     Active Substance: DOXORUBICIN HYDROCHLORIDE
     Indication: B-CELL LYMPHOMA
     Route: 042
     Dates: start: 20151016, end: 20160115
  5. LEUCOVORIN. [Suspect]
     Active Substance: LEUCOVORIN
     Indication: B-CELL LYMPHOMA
     Route: 048
     Dates: start: 20151009, end: 20160131
  6. LENOGRASTIM [Suspect]
     Active Substance: LENOGRASTIM
     Indication: B-CELL LYMPHOMA
     Dosage: 34 MIOE
     Route: 058
     Dates: start: 20151118, end: 20160204
  7. PEGFILGRASTIM [Suspect]
     Active Substance: PEGFILGRASTIM
     Indication: B-CELL LYMPHOMA
     Route: 058
     Dates: start: 20151019, end: 20151102
  8. TORASEMIDE [Concomitant]
     Active Substance: TORSEMIDE
     Indication: HYPERTENSION
     Route: 048
  9. INSULIN [Concomitant]
     Active Substance: INSULIN NOS
     Indication: DIABETES MELLITUS
     Route: 058
  10. PREDNISOLONE. [Suspect]
     Active Substance: PREDNISOLONE
     Indication: B-CELL LYMPHOMA
     Dosage: LAST PRIOR DOSE TO SERIOUS ADVERSE EVENT 30-OCT-2015
     Route: 048
     Dates: start: 20151016, end: 20160122
  11. TAMSULOSIN [Concomitant]
     Active Substance: TAMSULOSIN
     Indication: HYPERTENSION
     Route: 048
  12. BISOPROLOL HEMIFUMARATE [Concomitant]
     Active Substance: BISOPROLOL FUMARATE
     Indication: HYPERTENSION
     Route: 048
  13. CYCLOPHOSPHAMIDE. [Suspect]
     Active Substance: CYCLOPHOSPHAMIDE
     Indication: B-CELL LYMPHOMA
     Route: 042
     Dates: start: 20151016, end: 20160115
  14. ALLOPURINOL. [Concomitant]
     Active Substance: ALLOPURINOL
     Indication: PROPHYLAXIS
     Route: 048

REACTIONS (10)
  - Arrhythmia [Unknown]
  - Off label use [Unknown]
  - Pyrexia [Recovered/Resolved]
  - Pulmonary thrombosis [Recovered/Resolved with Sequelae]
  - Pulmonary embolism [Unknown]
  - Urinary tract infection [Recovered/Resolved]
  - Palmar-plantar erythrodysaesthesia syndrome [Recovered/Resolved]
  - Febrile neutropenia [Recovered/Resolved]
  - Product use in unapproved indication [Unknown]
  - Febrile infection [Recovered/Resolved]

NARRATIVE: CASE EVENT DATE: 20151016
